FAERS Safety Report 12285682 (Version 1)
Quarter: 2016Q2

REPORT INFORMATION
  Report Type: Spontaneous
  Country: JP (occurrence: JP)
  Receive Date: 20160420
  Receipt Date: 20160420
  Transmission Date: 20160815
  Serious: Yes (Hospitalization)
  Sender: FDA-Public Use
  Company Number: JP-MYLANLABS-2016M1016331

PATIENT

DRUGS (3)
  1. OXALIPLATIN. [Suspect]
     Active Substance: OXALIPLATIN
     Indication: METASTASES TO LIVER
     Dosage: 24 COURSES
     Route: 065
     Dates: start: 201003
  2. FOLINIC ACID [Suspect]
     Active Substance: LEUCOVORIN
     Indication: METASTASES TO LIVER
     Dosage: 24 COURSES
     Route: 065
     Dates: start: 201003
  3. FLUOROURACIL. [Suspect]
     Active Substance: FLUOROURACIL
     Indication: METASTASES TO LIVER
     Dosage: 24 COURSES FOLLOWED BY CONTINUOUS INFUSION
     Route: 050
     Dates: start: 201003

REACTIONS (2)
  - Duodenal perforation [Recovered/Resolved]
  - Peritonitis [Recovered/Resolved]
